FAERS Safety Report 8901768 (Version 1)
Quarter: 2012Q4

REPORT INFORMATION
  Report Type: Spontaneous
  Country: US (occurrence: None)
  Receive Date: 20121105
  Receipt Date: 20121105
  Transmission Date: 20130627
  Serious: Yes (Other)
  Sender: FDA-Public Use
  Company Number: 2012100059

PATIENT
  Age: 69 Year
  Sex: Male
  Weight: 68.95 kg

DRUGS (3)
  1. MUSE [Suspect]
     Indication: ERECTILE DYSFUNCTION
     Dosage: As required
     Route: 066
     Dates: start: 2002, end: 2012
  2. TOPROL XL (METOPROLOL SUCCINATE) [Concomitant]
  3. ECOTRIN (ACETYLSALICYLIC ACID) [Concomitant]

REACTIONS (3)
  - Type 2 diabetes mellitus [None]
  - Cardiac operation [None]
  - Blood triglycerides increased [None]
